FAERS Safety Report 24083828 (Version 1)
Quarter: 2024Q3

REPORT INFORMATION
  Report Type: Report from Study
  Country: US (occurrence: US)
  Receive Date: 20240712
  Receipt Date: 20240712
  Transmission Date: 20241016
  Serious: Yes (Hospitalization)
  Sender: GILEAD
  Company Number: US-GILEAD-2024-0680416

PATIENT
  Sex: Female

DRUGS (16)
  1. AMBRISENTAN [Suspect]
     Active Substance: AMBRISENTAN
     Indication: Product used for unknown indication
     Dosage: 10 MG, QD
     Route: 065
  2. TADALAFIL [Suspect]
     Active Substance: TADALAFIL
     Indication: Product used for unknown indication
     Dosage: UNK
     Route: 065
  3. OFEV [Suspect]
     Active Substance: NINTEDANIB
     Indication: Product used for unknown indication
     Route: 065
  4. POTASSIUM [Concomitant]
     Active Substance: POTASSIUM
  5. BENZONATATE [Concomitant]
     Active Substance: BENZONATATE
  6. LASIX [Concomitant]
     Active Substance: FUROSEMIDE
  7. ATENOLOL [Concomitant]
     Active Substance: ATENOLOL
  8. STELARA [Concomitant]
     Active Substance: USTEKINUMAB
  9. TYVASO [Concomitant]
     Active Substance: TREPROSTINIL
  10. ASCORBIC ACID [Concomitant]
     Active Substance: ASCORBIC ACID
  11. CALCIUM [Concomitant]
     Active Substance: CALCIUM
  12. PREDNISONE [Concomitant]
     Active Substance: PREDNISONE
  13. FOLIC ACID [Concomitant]
     Active Substance: FOLIC ACID
  14. XIIDRA [Concomitant]
     Active Substance: LIFITEGRAST
  15. OMEPRAZOLE [Concomitant]
     Active Substance: OMEPRAZOLE
  16. VTAMA [Concomitant]
     Active Substance: TAPINAROF

REACTIONS (1)
  - Dyspnoea [Unknown]
